FAERS Safety Report 8173061 (Version 1)
Quarter: 2012Q4

REPORT INFORMATION
  Report Type: 
  Country: GB (occurrence: GB)
  Receive Date: 20120905
  Receipt Date: 20120905
  Transmission Date: 20130627
  Serious: Yes (Other)
  Sender: FDA-Public Use
  Company Number: GB-UCBSA-027051

PATIENT
  Age: 37 Year
  Sex: Female

DRUGS (5)
  1. CO-CODAMOL [Suspect]
     Indication: SYMPHYSIOLYSIS
     Route: 048
  2. MST CONTINUS [Suspect]
     Indication: SYMPHYSIOLYSIS
     Route: 048
     Dates: start: 20100922
  3. BUTRANS [Suspect]
     Indication: SYMPHYSIOLYSIS
     Route: 062
     Dates: start: 20101215, end: 20101229
  4. PARACETAMOL [Suspect]
     Indication: SYMPHYSIOLYSIS
     Dosage: 1 G
     Route: 048
  5. CITALOPRAM [Concomitant]

REACTIONS (3)
  - Stillbirth [Unknown]
  - Exposure during pregnancy [Recovered/Resolved]
  - Drug ineffective [Unknown]
